FAERS Safety Report 6603717-3 (Version None)
Quarter: 2010Q1

REPORT INFORMATION
  Report Type: 
  Country: None (occurrence: None)
  Receive Date: 20100226
  Receipt Date: 20090807
  Transmission Date: 20100710
  Serious: No
  Sender: FDA-Public Use
  Company Number: A0759063A

PATIENT
  Age: 25 Year
  Sex: Male

DRUGS (2)
  1. LAMICTAL CD [Suspect]
     Indication: BIPOLAR DISORDER
     Dosage: 100MG UNKNOWN
     Route: 048
     Dates: start: 20071201, end: 20080101
  2. XANAX [Concomitant]

REACTIONS (3)
  - AMNESIA [None]
  - DISSOCIATION [None]
  - DRY MOUTH [None]
